FAERS Safety Report 6947371-X (Version None)
Quarter: 2010Q3

REPORT INFORMATION
  Report Type: 
  Country: None (occurrence: None)
  Receive Date: 20100827
  Receipt Date: 20100819
  Transmission Date: 20110219
  Serious: Yes (Hospitalization)
  Sender: FDA-Public Use
  Company Number: US-AMGEN-KDL434341

PATIENT
  Sex: Female

DRUGS (11)
  1. ENBREL [Suspect]
     Route: 064
     Dates: start: 20070808, end: 20090206
  2. FOLIC ACID [Concomitant]
     Route: 064
  3. ZOFRAN [Concomitant]
     Route: 064
  4. PRENATAL VITAMINS [Concomitant]
     Route: 064
  5. PLAQUENIL [Concomitant]
     Route: 064
     Dates: end: 20080616
  6. PREDNISONE [Concomitant]
     Route: 064
  7. IRON [Concomitant]
     Route: 064
  8. DARVOCET-N 100 [Concomitant]
     Route: 064
  9. DIFLUCAN [Concomitant]
     Route: 064
  10. TERCONAZOLE [Concomitant]
     Route: 064
  11. ZITHROMAX [Concomitant]
     Route: 064

REACTIONS (1)
  - UMBILICAL CORD AROUND NECK [None]
